FAERS Safety Report 9299400 (Version 4)
Quarter: 2013Q4

REPORT INFORMATION
  Report Type: Spontaneous
  Country: US (occurrence: US)
  Receive Date: 20130520
  Receipt Date: 20131127
  Transmission Date: 20140711
  Serious: Yes (Hospitalization)
  Sender: FDA-Public Use
  Company Number: US-B.I. PHARMACEUTICALS,INC./RIDGEFIELD-2013-BI-13936BP

PATIENT
  Sex: Male
  Weight: 88.45 kg

DRUGS (7)
  1. PRADAXA [Suspect]
     Indication: ANTICOAGULANT THERAPY
     Dosage: 150 MG
     Dates: start: 20110901, end: 20111022
  2. SPIRONOLACTONE [Concomitant]
     Dosage: 25 MG
     Dates: start: 200907, end: 201212
  3. SYNTHROID [Concomitant]
     Indication: HYPOTHYROIDISM
     Dosage: 225 MCG
     Dates: start: 200910, end: 201210
  4. FINASTERIDE [Concomitant]
     Dosage: 5 MG
  5. TERAZOSIN [Concomitant]
     Dosage: 5 MG
  6. CLONAZEPAM [Concomitant]
     Dates: start: 200907, end: 201301
  7. TAMSULOSIN [Concomitant]
     Dates: start: 200902, end: 201212

REACTIONS (1)
  - Gastrointestinal haemorrhage [Unknown]
